FAERS Safety Report 19255975 (Version 3)
Quarter: 2021Q3

REPORT INFORMATION
  Report Type: Spontaneous
  Country: CL (occurrence: CL)
  Receive Date: 20210514
  Receipt Date: 20210709
  Transmission Date: 20211014
  Serious: Yes (Death, Hospitalization, Other)
  Sender: FDA-Public Use
  Company Number: CL-ROCHE-2825467

PATIENT
  Age: 29 Year
  Sex: Male

DRUGS (29)
  1. ACYCLOVIR. [Concomitant]
     Active Substance: ACYCLOVIR
     Dosage: FREQUENCY WAS REPORTED AS 2 EVERY 12
     Route: 048
  2. HYDROXYZINE [Concomitant]
     Active Substance: HYDROXYZINE HYDROCHLORIDE
     Dosage: DOSE:1 TABLET
     Route: 048
  3. RITUXIMAB. [Suspect]
     Active Substance: RITUXIMAB
     Indication: NON-HODGKIN^S LYMPHOMA
     Route: 065
     Dates: start: 20200808
  4. CYCLOPHOSPHAMIDE. [Concomitant]
     Active Substance: CYCLOPHOSPHAMIDE
     Indication: NON-HODGKIN^S LYMPHOMA
  5. IFOSFAMIDE. [Concomitant]
     Active Substance: IFOSFAMIDE
     Indication: NON-HODGKIN^S LYMPHOMA
     Dates: start: 20200323
  6. ETOPOSIDE. [Concomitant]
     Active Substance: ETOPOSIDE
     Indication: NON-HODGKIN^S LYMPHOMA
     Dates: start: 20200817
  7. BILASTINE [Concomitant]
     Active Substance: BILASTINE
     Route: 048
  8. PREDNISONE. [Concomitant]
     Active Substance: PREDNISONE
     Indication: NON-HODGKIN^S LYMPHOMA
     Dates: start: 20200808
  9. DOXORUBICIN [Concomitant]
     Active Substance: DOXORUBICIN
     Indication: NON-HODGKIN^S LYMPHOMA
     Route: 065
     Dates: start: 20200212
  10. DOXORUBICIN [Concomitant]
     Active Substance: DOXORUBICIN
     Route: 065
     Dates: start: 20200808
  11. PREDNISONE. [Concomitant]
     Active Substance: PREDNISONE
     Dates: start: 20200212
  12. CARBOPLATIN. [Concomitant]
     Active Substance: CARBOPLATIN
     Indication: NON-HODGKIN^S LYMPHOMA
     Dosage: 750 MG
     Dates: start: 20200727
  13. DEXAMETHASONE. [Concomitant]
     Active Substance: DEXAMETHASONE
     Indication: NON-HODGKIN^S LYMPHOMA
     Dates: start: 20200808
  14. ONDANSETRON [Concomitant]
     Active Substance: ONDANSETRON
     Dosage: FREQUENCY: IN CAUSE OF NAUSEA
     Route: 060
  15. COTRIMOXAZOL FORTE [Concomitant]
     Active Substance: SULFAMETHOXAZOLE\TRIMETHOPRIM
     Dosage: FREQUENCY: 1 TABLET ON MONDAY?WEDNESDAY AND FRIDAY. DOSE WAS NOT REPORTED
     Route: 048
  16. RITUXIMAB. [Suspect]
     Active Substance: RITUXIMAB
     Route: 065
     Dates: start: 20200727
  17. VINCRISTINE [Concomitant]
     Active Substance: VINCRISTINE
     Indication: NON-HODGKIN^S LYMPHOMA
     Dates: start: 20200302
  18. METHOTREXATE. [Concomitant]
     Active Substance: METHOTREXATE
     Indication: NON-HODGKIN^S LYMPHOMA
  19. PAROXETINE. [Concomitant]
     Active Substance: PAROXETINE
     Route: 048
  20. CARVEDILOL. [Concomitant]
     Active Substance: CARVEDILOL
  21. URSODEOXYCHOLIC ACID [Concomitant]
     Active Substance: URSODIOL
     Route: 048
  22. RITUXIMAB. [Suspect]
     Active Substance: RITUXIMAB
     Route: 065
     Dates: start: 20200302
  23. CYCLOPHOSPHAMIDE. [Concomitant]
     Active Substance: CYCLOPHOSPHAMIDE
     Dates: start: 20200212
  24. VINORELBINE [Concomitant]
     Active Substance: VINORELBINE TARTRATE
     Indication: NON-HODGKIN^S LYMPHOMA
     Dates: start: 20200808
  25. TRIUMEQ [Concomitant]
     Active Substance: ABACAVIR SULFATE\DOLUTEGRAVIR SODIUM\LAMIVUDINE
     Dosage: 1 TABLET
     Route: 048
     Dates: start: 20200808
  26. FLUCONAZOLE. [Concomitant]
     Active Substance: FLUCONAZOLE
     Dosage: FREQUENCY: 1 TABLET PER DAY FRIDAY
     Route: 048
  27. DOXORUBICIN [Concomitant]
     Active Substance: DOXORUBICIN
     Route: 065
     Dates: start: 20200302
  28. GEMCITABINE. [Concomitant]
     Active Substance: GEMCITABINE
     Indication: NON-HODGKIN^S LYMPHOMA
     Dates: start: 20200727
  29. FAMOTIDINE. [Concomitant]
     Active Substance: FAMOTIDINE
     Route: 048

REACTIONS (10)
  - Electrocardiogram repolarisation abnormality [Unknown]
  - Renal injury [Unknown]
  - Lung opacity [Unknown]
  - Febrile neutropenia [Recovered/Resolved]
  - Mucosal inflammation [Unknown]
  - Graft versus host disease in liver [Unknown]
  - Meningoencephalitis herpetic [Fatal]
  - Lymphoma [Unknown]
  - Anorectal disorder [Unknown]
  - Mediastinal mass [Unknown]

NARRATIVE: CASE EVENT DATE: 20200815
